FAERS Safety Report 8460862-8 (Version None)
Quarter: 2012Q2

REPORT INFORMATION
  Report Type: 
  Country: None (occurrence: None)
  Receive Date: 20120625
  Receipt Date: 20120620
  Transmission Date: 20120825
  Serious: Yes (Other)
  Sender: FDA-Public Use
  Company Number: US-AMGEN-USASP2011025093

PATIENT
  Sex: Female

DRUGS (2)
  1. CHEMOTHERAPEUTICS [Concomitant]
  2. NEULASTA [Suspect]
     Indication: CHEMOTHERAPY
     Dates: start: 20060801

REACTIONS (20)
  - PAIN [None]
  - BACK PAIN [None]
  - DEPRESSION [None]
  - MOBILITY DECREASED [None]
  - FATIGUE [None]
  - CENTRAL VENOUS CATHETERISATION [None]
  - ANTICOAGULANT THERAPY [None]
  - DISABILITY [None]
  - MENOPAUSE [None]
  - OEDEMA PERIPHERAL [None]
  - FIBROMYALGIA [None]
  - THERAPEUTIC PRODUCT INEFFECTIVE [None]
  - DEEP VEIN THROMBOSIS [None]
  - MIGRAINE [None]
  - NON-ALCOHOLIC STEATOHEPATITIS [None]
  - HYSTERECTOMY [None]
  - WEIGHT INCREASED [None]
  - PAIN IN EXTREMITY [None]
  - ALOPECIA [None]
  - SWELLING [None]
